FAERS Safety Report 4494310-X (Version None)
Quarter: 2004Q4

REPORT INFORMATION
  Report Type: 
  Country: None (occurrence: None)
  Receive Date: 20041105
  Receipt Date: 20041001
  Transmission Date: 20050328
  Serious: Yes (Other)
  Sender: FDA-Public Use
  Company Number: JP-GLAXOSMITHKLINE-B0347528A

PATIENT
  Age: 28 Year
  Sex: Female
  Weight: 50 kg

DRUGS (7)
  1. PAXIL [Suspect]
     Indication: DEPRESSION
     Route: 048
     Dates: start: 20010501, end: 20010812
  2. RESLIN [Suspect]
     Indication: INSOMNIA
     Route: 048
     Dates: start: 20010501, end: 20030722
  3. DEPAS [Suspect]
     Dosage: 9MG PER DAY
     Route: 048
     Dates: start: 20010812, end: 20010812
  4. TEGRETOL [Suspect]
     Indication: BIPOLAR DISORDER
     Dosage: 100MG FOUR TIMES PER DAY
     Route: 048
     Dates: start: 20010121, end: 20040812
  5. SEDIEL [Suspect]
     Dosage: 100MG PER DAY
     Route: 048
     Dates: start: 20010812, end: 20010812
  6. VALPROATE SODIUM [Concomitant]
     Indication: BIPOLAR DISORDER
     Route: 048
     Dates: start: 20010501, end: 20010704
  7. LEXOTAN [Concomitant]
     Dosage: 2MG PER DAY
     Route: 048
     Dates: start: 20010812, end: 20010812

REACTIONS (7)
  - EMOTIONAL DISORDER [None]
  - FEELING ABNORMAL [None]
  - MOOD ALTERED [None]
  - OVERDOSE [None]
  - PSYCHOMOTOR HYPERACTIVITY [None]
  - SOMNOLENCE [None]
  - SUICIDE ATTEMPT [None]
